FAERS Safety Report 19707058 (Version 1)
Quarter: 2021Q3

REPORT INFORMATION
  Report Type: Spontaneous
  Country: US (occurrence: US)
  Receive Date: 20210817
  Receipt Date: 20210817
  Transmission Date: 20211014
  Serious: Yes (Life-Threatening, Other)
  Sender: FDA-Public Use
  Company Number: None

PATIENT
  Age: 32 Year
  Sex: Female
  Weight: 89.1 kg

DRUGS (17)
  1. VALACYCLOVIR [Concomitant]
     Active Substance: VALACYCLOVIR HYDROCHLORIDE
  2. MONTELUKAST [Concomitant]
     Active Substance: MONTELUKAST SODIUM
  3. BENADRYL [Concomitant]
     Active Substance: DIPHENHYDRAMINE HYDROCHLORIDE
  4. VITAMIN C [Concomitant]
     Active Substance: ASCORBIC ACID
  5. MOLYBDENUM [Concomitant]
     Active Substance: MOLYBDENUM
  6. VITAMIN D3 [Concomitant]
     Active Substance: CHOLECALCIFEROL
  7. MELATONIN [Concomitant]
     Active Substance: MELATONIN
  8. NURTEC ODT [Concomitant]
     Active Substance: RIMEGEPANT SULFATE
  9. HYDROXYZINE [Concomitant]
     Active Substance: HYDROXYZINE HYDROCHLORIDE
  10. WOMEN^S ONE A DAY MULTIVITAMIN [Concomitant]
  11. MAGNESIUM [Concomitant]
     Active Substance: MAGNESIUM
  12. CLARITIN [Concomitant]
     Active Substance: LORATADINE
  13. TOPIRAMATE. [Suspect]
     Active Substance: TOPIRAMATE
     Indication: MIGRAINE
     Dosage: ?          QUANTITY:2 TABLET(S);?
     Route: 048
     Dates: start: 20201211, end: 20210124
  14. FLUOXETINE [Concomitant]
     Active Substance: FLUOXETINE HYDROCHLORIDE
  15. SYMBICORT [Concomitant]
     Active Substance: BUDESONIDE\FORMOTEROL FUMARATE DIHYDRATE
  16. ALBUTEROL SULFATE. [Concomitant]
     Active Substance: ALBUTEROL SULFATE
  17. VITAMIN B12 [Concomitant]
     Active Substance: CYANOCOBALAMIN

REACTIONS (6)
  - Hallucination [None]
  - Suicidal ideation [None]
  - Sleep deficit [None]
  - Nausea [None]
  - Paranoia [None]
  - Dizziness [None]

NARRATIVE: CASE EVENT DATE: 20210107
